FAERS Safety Report 18412401 (Version 3)
Quarter: 2021Q1

REPORT INFORMATION
  Report Type: Spontaneous
  Country: JP (occurrence: JP)
  Receive Date: 20201021
  Receipt Date: 20210128
  Transmission Date: 20210419
  Serious: Yes (Death)
  Sender: FDA-Public Use
  Company Number: JP-JNJFOC-20201025612

PATIENT
  Age: 67 Year
  Sex: Male
  Weight: 89.7 kg

DRUGS (9)
  1. VELCADE [Suspect]
     Active Substance: BORTEZOMIB
     Indication: PLASMA CELL MYELOMA
     Route: 058
     Dates: start: 20200925, end: 20200925
  2. MONTELUKAST [Concomitant]
     Active Substance: MONTELUKAST SODIUM
     Route: 048
     Dates: start: 20200925, end: 20200925
  3. ALKERAN [Concomitant]
     Active Substance: MELPHALAN
     Indication: PLASMA CELL MYELOMA
     Route: 048
     Dates: start: 20200925, end: 20200925
  4. NOVORAPID [Concomitant]
     Active Substance: INSULIN ASPART
     Indication: DIABETES MELLITUS
     Dosage: 18 UNITS IN THE MORNING,10 UNITS IN THE AFTERNOON
     Route: 058
  5. HUMALOG MIX [Concomitant]
     Active Substance: INSULIN LISPRO
     Indication: DIABETES MELLITUS
     Dosage: 16 UNITS IN THE EVENING
     Route: 058
  6. DARZALEX [Suspect]
     Active Substance: DARATUMUMAB
     Indication: PLASMA CELL MYELOMA
     Route: 041
     Dates: start: 20200925, end: 20200925
  7. PREDNISOLONE. [Concomitant]
     Active Substance: PREDNISOLONE
     Indication: PLASMA CELL MYELOMA
     Dosage: DOSE UNKNOWN
     Route: 065
     Dates: start: 20200925, end: 20200925
  8. POLARAMINE [Concomitant]
     Active Substance: DEXCHLORPHENIRAMINE MALEATE
     Indication: CHEMOTHERAPY SIDE EFFECT PROPHYLAXIS
     Route: 042
     Dates: start: 20200925, end: 20200925
  9. DEXART [Concomitant]
     Active Substance: DEXAMETHASONE SODIUM PHOSPHATE
     Indication: CHEMOTHERAPY SIDE EFFECT PROPHYLAXIS
     Route: 041
     Dates: start: 20200925, end: 20200925

REACTIONS (4)
  - Infusion related reaction [Recovered/Resolved]
  - Cardiac arrest [Fatal]
  - Chills [Recovered/Resolved]
  - Tumour lysis syndrome [Fatal]

NARRATIVE: CASE EVENT DATE: 20200925
